FAERS Safety Report 5260907-2 (Version None)
Quarter: 2007Q1

REPORT INFORMATION
  Report Type: 
  Country: None (occurrence: None)
  Receive Date: 20070309
  Receipt Date: 20070227
  Transmission Date: 20070707
  Serious: Yes (Hospitalization, Other)
  Sender: FDA-Public Use
  Company Number: HQWYE414107SEP06

PATIENT
  Age: 64 Year
  Sex: Male

DRUGS (3)
  1. VENLAFAXINE HYDROCHLORIDE [Suspect]
     Indication: DEPRESSION
     Dosage: 75 MG, FREQUENCY UNKNOWN
     Dates: start: 20040101, end: 20040101
  2. MIRTAZAPINE [Suspect]
     Indication: DEPRESSION
     Dosage: UNKNOWN
     Dates: start: 20040101
  3. SERTRALINE [Suspect]
     Indication: DEPRESSION
     Dosage: UNKNOWN
     Dates: start: 20040101

REACTIONS (7)
  - ANXIETY [None]
  - DELUSION [None]
  - DRUG INEFFECTIVE [None]
  - MAJOR DEPRESSION [None]
  - PARKINSON'S DISEASE [None]
  - PSYCHOTIC DISORDER [None]
  - RESTLESSNESS [None]
